FAERS Safety Report 5006297-1 (Version None)
Quarter: 2006Q2

REPORT INFORMATION
  Report Type: 
  Country: None (occurrence: None)
  Receive Date: 20060517
  Receipt Date: 20060517
  Transmission Date: 20061013
  Serious: Yes (Death)
  Sender: FDA-Public Use
  Company Number: None

PATIENT
  Age: 29 Year
  Sex: Male
  Weight: 72.5755 kg

DRUGS (2)
  1. ISONIAZID [Suspect]
     Indication: TUBERCULIN TEST POSITIVE
     Dosage: 1X DAY ORAL
     Route: 048
     Dates: start: 20051001, end: 20060421
  2. VITAMIN B6 [Suspect]

REACTIONS (3)
  - DEHYDRATION [None]
  - DEMENTIA [None]
  - HEPATIC FAILURE [None]
